FAERS Safety Report 16307391 (Version 1)
Quarter: 2019Q2

REPORT INFORMATION
  Report Type: Report from Study
  Country: None (occurrence: US)
  Receive Date: 20190514
  Receipt Date: 20190514
  Transmission Date: 20190711
  Serious: Yes (Hospitalization, Other)
  Sender: FDA-Public Use
  Company Number: US-ABBVIE-17K-163-1889471-00

PATIENT
  Age: 54 Year
  Sex: Female
  Weight: 55.84 kg

DRUGS (9)
  1. HUMIRA [Suspect]
     Active Substance: ADALIMUMAB
     Indication: RHEUMATOID ARTHRITIS
     Route: 058
     Dates: start: 20170127, end: 20170210
  2. GABAPENTIN. [Concomitant]
     Active Substance: GABAPENTIN
     Indication: NEURALGIA
  3. VITAMIN B12 [Concomitant]
     Active Substance: CYANOCOBALAMIN
     Indication: PRODUCT USED FOR UNKNOWN INDICATION
  4. HUMIRA [Suspect]
     Active Substance: ADALIMUMAB
     Route: 058
     Dates: start: 20170224, end: 20170310
  5. METHOTREXATE. [Concomitant]
     Active Substance: METHOTREXATE
     Indication: RHEUMATOID ARTHRITIS
  6. VITAMIN D [Concomitant]
     Active Substance: VITAMIN D NOS
     Indication: PRODUCT USED FOR UNKNOWN INDICATION
  7. HUMIRA [Suspect]
     Active Substance: ADALIMUMAB
     Route: 058
     Dates: start: 20170412
  8. FOLIC ACID. [Concomitant]
     Active Substance: FOLIC ACID
     Indication: RHEUMATOID ARTHRITIS
  9. CLONAZEPAM. [Concomitant]
     Active Substance: CLONAZEPAM
     Indication: RESTLESS LEGS SYNDROME

REACTIONS (24)
  - Hip arthroplasty [Unknown]
  - Tachycardia [Recovered/Resolved]
  - Influenza [Unknown]
  - Joint injection [Unknown]
  - Candida infection [Recovered/Resolved]
  - Pneumonia [Recovered/Resolved]
  - Epistaxis [Recovered/Resolved]
  - Musculoskeletal disorder [Unknown]
  - Sinusitis [Unknown]
  - Muscle spasms [Not Recovered/Not Resolved]
  - Blood pressure increased [Unknown]
  - Fine motor skill dysfunction [Unknown]
  - Hypotension [Unknown]
  - Syncope [Unknown]
  - Post procedural complication [Unknown]
  - Diplopia [Unknown]
  - Epistaxis [Recovered/Resolved]
  - Arthralgia [Unknown]
  - Postoperative hypotension [Unknown]
  - Insomnia [Unknown]
  - Pneumonia [Unknown]
  - Sepsis [Recovered/Resolved]
  - Epistaxis [Recovered/Resolved]
  - Pharyngitis streptococcal [Unknown]

NARRATIVE: CASE EVENT DATE: 2017
